FAERS Safety Report 8451964-0 (Version None)
Quarter: 2012Q2

REPORT INFORMATION
  Report Type: 
  Country: None (occurrence: None)
  Receive Date: 20120620
  Receipt Date: 20120327
  Transmission Date: 20120825
  Serious: No
  Sender: FDA-Public Use
  Company Number: US-VERTEX PHARMACEUTICALS INC.-AE-2012-004409

PATIENT
  Sex: Female
  Weight: 87.168 kg

DRUGS (6)
  1. INCIVEK [Suspect]
     Indication: HEPATITIS C
     Route: 048
     Dates: start: 20120123
  2. HYDROXYZINE [Concomitant]
  3. C-TRIAMCINOLONE [Concomitant]
     Route: 061
  4. PROMETAZINE [Concomitant]
  5. PEGASYS [Concomitant]
     Indication: HEPATITIS C
     Route: 058
     Dates: start: 20120123
  6. RIBAVIRIN [Concomitant]
     Indication: HEPATITIS C
     Dates: start: 20120123

REACTIONS (6)
  - URTICARIA [None]
  - RASH PRURITIC [None]
  - ANAEMIA [None]
  - PAIN IN EXTREMITY [None]
  - OEDEMA PERIPHERAL [None]
  - NAUSEA [None]
